FAERS Safety Report 6231292-4 (Version None)
Quarter: 2009Q2

REPORT INFORMATION
  Report Type: 
  Country: None (occurrence: None)
  Receive Date: 20090616
  Receipt Date: 20090604
  Transmission Date: 20091009
  Serious: Yes (Death)
  Sender: FDA-Public Use
  Company Number: CA-BAXTER-2006BH011340

PATIENT
  Age: 53 Year
  Sex: Male

DRUGS (1)
  1. POTASSIUM CHLORIDE 0.15% IN DEXTROSE 5% [Suspect]
     Indication: RENAL FAILURE
     Route: 065

REACTIONS (1)
  - MEDICATION ERROR [None]
